FAERS Safety Report 24636144 (Version 1)
Quarter: 2024Q4

REPORT INFORMATION
  Report Type: Spontaneous
  Country: IT (occurrence: IT)
  Receive Date: 20241119
  Receipt Date: 20241119
  Transmission Date: 20250114
  Serious: Yes (Other)
  Sender: AUROBINDO
  Company Number: IT-AUROBINDO-AUR-APL-2024-055512

PATIENT
  Age: 69 Year
  Sex: Male

DRUGS (6)
  1. FUROSEMIDE [Suspect]
     Active Substance: FUROSEMIDE
     Indication: Chronic kidney disease
     Dosage: 250 MILLIGRAM, TWO TIMES A DAY
     Route: 065
     Dates: start: 2021
  2. FUROSEMIDE [Suspect]
     Active Substance: FUROSEMIDE
     Indication: Cardiac failure
  3. METOLAZONE [Suspect]
     Active Substance: METOLAZONE
     Indication: Chronic kidney disease
     Dosage: 5 MILLIGRAM, ONCE A DAY
     Route: 065
     Dates: start: 2021
  4. METOLAZONE [Suspect]
     Active Substance: METOLAZONE
     Indication: Cardiac failure
  5. SPIRONOLACTONE [Suspect]
     Active Substance: SPIRONOLACTONE
     Indication: Chronic kidney disease
     Dosage: 50 MILLIGRAM, ONCE A DAY
     Route: 065
  6. SPIRONOLACTONE [Suspect]
     Active Substance: SPIRONOLACTONE
     Indication: Cardiac failure

REACTIONS (1)
  - Drug ineffective [Unknown]
